FAERS Safety Report 8153620-5 (Version None)
Quarter: 2012Q1

REPORT INFORMATION
  Report Type: 
  Country: None (occurrence: None)
  Receive Date: 20120221
  Receipt Date: 20111116
  Transmission Date: 20120608
  Serious: Yes (Hospitalization)
  Sender: FDA-Public Use
  Company Number: CA-JNJFOC-20110206997

PATIENT
  Sex: Female
  Weight: 67 kg

DRUGS (10)
  1. PENTASA [Concomitant]
     Dosage: TWO TABLETS OF 500 MG, 4 TIMES A DAY
     Route: 048
  2. RISEDRONATE SODIUM [Concomitant]
     Route: 065
  3. FOLIC ACID [Concomitant]
     Route: 065
  4. VITAMIN B-12 [Concomitant]
     Dosage: FOR MONTH
     Route: 065
  5. VITAMIN D W/ CALCIUM [Concomitant]
     Route: 065
  6. VITAMIN D W/ CALCIUM [Concomitant]
     Route: 065
  7. REMICADE [Suspect]
     Indication: CROHN'S DISEASE
     Route: 042
     Dates: start: 20110211
  8. OMEGA 3-6-9 [Concomitant]
     Route: 065
  9. ACETAMINOPHEN [Concomitant]
     Dosage: AS AND WHEN REQUIRED
     Route: 065
  10. IMURAN [Concomitant]
     Route: 065

REACTIONS (3)
  - BLOOD PRESSURE INCREASED [None]
  - DIZZINESS [None]
  - HOSPITALISATION [None]
